FAERS Safety Report 20743327 (Version 1)
Quarter: 2022Q2

REPORT INFORMATION
  Report Type: Spontaneous
  Country: AU (occurrence: CA)
  Receive Date: 20220425
  Receipt Date: 20220425
  Transmission Date: 20220721
  Serious: Yes (Life-Threatening)
  Sender: FDA-Public Use
  Company Number: None

PATIENT
  Age: 88 Year
  Sex: Male
  Weight: 81.64 kg

DRUGS (1)
  1. OZEMPIC [Suspect]
     Active Substance: SEMAGLUTIDE
     Indication: Type 2 diabetes mellitus
     Dosage: 0.5 MG, QW
     Route: 051

REACTIONS (4)
  - Insomnia [Recovered/Resolved]
  - Gastrooesophageal reflux disease [Recovered/Resolved]
  - Therapy change [Recovered/Resolved]
  - Incorrect route of product administration [Unknown]
